FAERS Safety Report 7396584-4 (Version None)
Quarter: 2011Q2

REPORT INFORMATION
  Report Type: 
  Country: None (occurrence: None)
  Receive Date: 20110406
  Receipt Date: 20110323
  Transmission Date: 20111010
  Serious: Yes (Hospitalization, Other)
  Sender: FDA-Public Use
  Company Number: PHHY2011FR23413

PATIENT
  Sex: Male

DRUGS (3)
  1. TASIGNA [Suspect]
     Indication: CHRONIC MYELOID LEUKAEMIA
     Dosage: 200 MG, QID
     Route: 048
     Dates: start: 20091001
  2. PEGASYS [Suspect]
     Dosage: 180 UG, QD
     Route: 058
     Dates: start: 20091001, end: 20110120
  3. PEGASYS [Suspect]
     Dosage: UNK
     Dates: start: 20110222

REACTIONS (3)
  - PERICARDIAL EFFUSION [None]
  - PLEURAL EFFUSION [None]
  - HYPERTHERMIA [None]
